FAERS Safety Report 24864555 (Version 2)
Quarter: 2025Q1

REPORT INFORMATION
  Report Type: Spontaneous
  Country: BR (occurrence: BR)
  Receive Date: 20250120
  Receipt Date: 20250130
  Transmission Date: 20250409
  Serious: Yes (Disabling)
  Sender: CELLTRION
  Company Number: BR-CELLTRION INC.-2025BR001285

PATIENT

DRUGS (1)
  1. INFLIXIMAB [Suspect]
     Active Substance: INFLIXIMAB
     Indication: Ankylosing spondylitis
     Route: 042
     Dates: start: 20230911

REACTIONS (3)
  - Spinal pain [Recovering/Resolving]
  - Arthralgia [Recovering/Resolving]
  - Therapy interrupted [Unknown]
